FAERS Safety Report 14122494 (Version 1)
Quarter: 2017Q4

REPORT INFORMATION
  Report Type: Spontaneous
  Country: US (occurrence: US)
  Receive Date: 20171024
  Receipt Date: 20171024
  Transmission Date: 20180321
  Serious: No
  Sender: FDA-Public Use
  Company Number: US-TEIKOKU PHARMA USA-TPU2017-00659

PATIENT
  Sex: Female

DRUGS (1)
  1. LIDOCAINE PATCH [Suspect]
     Active Substance: LIDOCAINE
     Indication: POST HERPETIC NEURALGIA
     Dosage: ONE PATCH APPLIED TO LEFT SHOULDER BLADE, FROM 9PM TO 9AM (12 HOURS ON, 12 HOURS OFF)

REACTIONS (2)
  - Application site coldness [Unknown]
  - Hypoacusis [Not Recovered/Not Resolved]
